FAERS Safety Report 17831250 (Version 2)
Quarter: 2021Q2

REPORT INFORMATION
  Report Type: Other
  Country: US (occurrence: US)
  Receive Date: 20200528
  Receipt Date: 20210413
  Transmission Date: 20210717
  Serious: Yes (Other)
  Sender: FDA-Public Use
  Company Number: US-ROCHE-2482458

PATIENT
  Age: 62 Year
  Sex: Male
  Weight: 70.37 kg

DRUGS (1)
  1. OCREVUS [Suspect]
     Active Substance: OCRELIZUMAB
     Indication: RELAPSING-REMITTING MULTIPLE SCLEROSIS
     Dosage: NEXT INFUSION WAS RECEIVED ON 24/SEP/2019 (300 MG)?NEXT INFUSIONS WILL BE 600 MG ONCE EVERY 6 MONTHS
     Route: 042
     Dates: start: 20190911

REACTIONS (9)
  - Dry skin [Not Recovered/Not Resolved]
  - Skin exfoliation [Recovered/Resolved]
  - Fall [Unknown]
  - Swelling face [Not Recovered/Not Resolved]
  - Musculoskeletal stiffness [Not Recovered/Not Resolved]
  - Angina pectoris [Recovered/Resolved]
  - Skin wrinkling [Recovering/Resolving]
  - Pruritus [Not Recovered/Not Resolved]
  - Dandruff [Not Recovered/Not Resolved]

NARRATIVE: CASE EVENT DATE: 202003
